FAERS Safety Report 5553766-1 (Version None)
Quarter: 2007Q4

REPORT INFORMATION
  Report Type: 
  Country: None (occurrence: None)
  Receive Date: 20071213
  Receipt Date: 20070716
  Transmission Date: 20080405
  Serious: No
  Sender: FDA-Public Use
  Company Number: US-AMGEN-KDL215981

PATIENT
  Sex: Female
  Weight: 68.1 kg

DRUGS (1)
  1. ENBREL [Suspect]
     Indication: ANKYLOSING SPONDYLITIS
     Route: 058
     Dates: start: 20070216

REACTIONS (6)
  - CHILLS [None]
  - EXTRASYSTOLES [None]
  - PAIN [None]
  - PALPITATIONS [None]
  - PYREXIA [None]
  - STRESS [None]
